FAERS Safety Report 13252505 (Version 1)
Quarter: 2017Q1

REPORT INFORMATION
  Report Type: Spontaneous
  Country: US (occurrence: US)
  Receive Date: 20170220
  Receipt Date: 20170220
  Transmission Date: 20170428
  Serious: Yes (Hospitalization)
  Sender: FDA-Public Use
  Company Number: US-PFIZER INC-2017041674

PATIENT
  Age: 76 Year
  Sex: Female

DRUGS (1)
  1. NOREPINEPHRINE BITARTRATE. [Suspect]
     Active Substance: NOREPINEPHRINE BITARTRATE
     Dosage: 4 MG, UNK
     Route: 042

REACTIONS (2)
  - Wrong drug administered [Unknown]
  - Stress cardiomyopathy [Recovered/Resolved]
